FAERS Safety Report 13153918 (Version 2)
Quarter: 2017Q1

REPORT INFORMATION
  Report Type: Spontaneous
  Country: DE (occurrence: DE)
  Receive Date: 20170126
  Receipt Date: 20170206
  Transmission Date: 20170428
  Serious: Yes (Hospitalization, Other)
  Sender: FDA-Public Use
  Company Number: DE-DRREDDYS-USA/GER/17/0086581

PATIENT
  Age: 81 Year
  Sex: Female

DRUGS (7)
  1. RISPERIDONE. [Interacting]
     Active Substance: RISPERIDONE
     Route: 065
  2. METRONIDAZOLE. [Interacting]
     Active Substance: METRONIDAZOLE
     Indication: CLOSTRIDIUM DIFFICILE COLITIS
     Route: 065
  3. RISPERIDONE. [Interacting]
     Active Substance: RISPERIDONE
     Indication: MAJOR DEPRESSION
     Route: 065
  4. METRONIDAZOLE. [Interacting]
     Active Substance: METRONIDAZOLE
     Indication: GASTROENTERITIS CLOSTRIDIAL
  5. VENLAFAXINE HYDROCHLORIDE. [Suspect]
     Active Substance: VENLAFAXINE HYDROCHLORIDE
     Indication: MAJOR DEPRESSION
     Route: 065
  6. CEFUROXIME. [Concomitant]
     Active Substance: CEFUROXIME
     Indication: URINARY TRACT INFECTION
     Route: 065
  7. VENLAFAXINE HYDROCHLORIDE. [Interacting]
     Active Substance: VENLAFAXINE HYDROCHLORIDE
     Indication: PSYCHOTIC DISORDER

REACTIONS (11)
  - Clostridium difficile colitis [Unknown]
  - C-reactive protein increased [Unknown]
  - Drug interaction [Recovering/Resolving]
  - Dehydration [Unknown]
  - Urinary tract infection pseudomonal [Unknown]
  - Enteritis [Unknown]
  - Antidepressant drug level increased [Recovering/Resolving]
  - Fatigue [Unknown]
  - Dizziness [Unknown]
  - Hyponatraemia [Recovering/Resolving]
  - Orthostatic hypotension [Recovering/Resolving]
